FAERS Safety Report 5907852-4 (Version None)
Quarter: 2008Q4

REPORT INFORMATION
  Report Type: 
  Country: None (occurrence: None)
  Receive Date: 20081003
  Receipt Date: 20080926
  Transmission Date: 20090506
  Serious: Yes (Death, Hospitalization, Disabling)
  Sender: FDA-Public Use
  Company Number: PH-PFIZER INC-2008024851

PATIENT
  Sex: Female

DRUGS (2)
  1. NORVASC [Suspect]
     Indication: HYPERTENSION
     Dates: end: 20071201
  2. DRUG, UNSPECIFIED [Concomitant]
     Indication: ARTHRITIS
     Dates: end: 20071201

REACTIONS (2)
  - DEATH [None]
  - FALL [None]
